FAERS Safety Report 16832899 (Version 1)
Quarter: 2019Q3

REPORT INFORMATION
  Report Type: Report from Study
  Country: CN (occurrence: CN)
  Receive Date: 20190920
  Receipt Date: 20190920
  Transmission Date: 20191005
  Serious: Yes (Other)
  Sender: FDA-Public Use
  Company Number: CN-ROCHE-2404182

PATIENT

DRUGS (132)
  1. BEVACIZUMAB. [Suspect]
     Active Substance: BEVACIZUMAB
     Indication: SOFT TISSUE SARCOMA
  2. CAPECITABINE. [Suspect]
     Active Substance: CAPECITABINE
     Indication: CERVIX CARCINOMA
  3. CAPECITABINE. [Suspect]
     Active Substance: CAPECITABINE
     Indication: CLEAR CELL RENAL CELL CARCINOMA
  4. IRINOTECAN [Suspect]
     Active Substance: IRINOTECAN
     Indication: GASTRIC CANCER
  5. RALTITREXED [Suspect]
     Active Substance: RALTITREXED
     Indication: GASTRIC CANCER
  6. RALTITREXED [Suspect]
     Active Substance: RALTITREXED
     Indication: SOFT TISSUE SARCOMA
  7. PACLITAXEL. [Suspect]
     Active Substance: PACLITAXEL
     Indication: GLIOBLASTOMA
  8. CARBOPLATIN. [Suspect]
     Active Substance: CARBOPLATIN
     Indication: SOFT TISSUE SARCOMA
  9. GEMCITABINE. [Suspect]
     Active Substance: GEMCITABINE
     Indication: NON-SMALL CELL LUNG CANCER
     Route: 065
  10. GEMCITABINE. [Suspect]
     Active Substance: GEMCITABINE
     Indication: GLIOBLASTOMA
  11. CISPLATIN. [Suspect]
     Active Substance: CISPLATIN
     Indication: GASTRIC CANCER
  12. VINORELBINE BITARTRATE [Suspect]
     Active Substance: VINORELBINE TARTRATE
     Indication: MALIGNANT MELANOMA
  13. VINORELBINE BITARTRATE [Suspect]
     Active Substance: VINORELBINE TARTRATE
     Indication: GASTRIC CANCER
  14. DACARBAZINE. [Suspect]
     Active Substance: DACARBAZINE
     Indication: MALIGNANT MELANOMA
  15. DACARBAZINE. [Suspect]
     Active Substance: DACARBAZINE
     Indication: SOFT TISSUE SARCOMA
  16. DACARBAZINE. [Suspect]
     Active Substance: DACARBAZINE
     Indication: URETERIC CANCER
  17. BEVACIZUMAB. [Suspect]
     Active Substance: BEVACIZUMAB
     Indication: GASTRIC CANCER
  18. CAPECITABINE. [Suspect]
     Active Substance: CAPECITABINE
     Indication: MALIGNANT MELANOMA
  19. CAPECITABINE. [Suspect]
     Active Substance: CAPECITABINE
     Indication: COLORECTAL CANCER
  20. CAPECITABINE. [Suspect]
     Active Substance: CAPECITABINE
     Indication: GASTRIC CANCER
  21. CAPECITABINE. [Suspect]
     Active Substance: CAPECITABINE
     Indication: URETERIC CANCER
  22. OXALIPLATIN. [Suspect]
     Active Substance: OXALIPLATIN
     Indication: BREAST CANCER
  23. OXALIPLATIN. [Suspect]
     Active Substance: OXALIPLATIN
     Indication: SOFT TISSUE SARCOMA
  24. IRINOTECAN [Suspect]
     Active Substance: IRINOTECAN
     Indication: CERVIX CARCINOMA
  25. IRINOTECAN [Suspect]
     Active Substance: IRINOTECAN
     Indication: BREAST CANCER
  26. 5-FLUOROURACIL [FLUOROURACIL] [Suspect]
     Active Substance: FLUOROURACIL
     Indication: BREAST CANCER
  27. 5-FLUOROURACIL [FLUOROURACIL] [Suspect]
     Active Substance: FLUOROURACIL
     Indication: CLEAR CELL RENAL CELL CARCINOMA
  28. RALTITREXED [Suspect]
     Active Substance: RALTITREXED
     Indication: URETERIC CANCER
  29. PACLITAXEL. [Suspect]
     Active Substance: PACLITAXEL
     Indication: MALIGNANT MELANOMA
  30. PACLITAXEL. [Suspect]
     Active Substance: PACLITAXEL
     Indication: BREAST CANCER
  31. GEMCITABINE. [Suspect]
     Active Substance: GEMCITABINE
     Indication: MALIGNANT MELANOMA
  32. GEMCITABINE. [Suspect]
     Active Substance: GEMCITABINE
     Indication: CERVIX CARCINOMA
  33. GEMCITABINE. [Suspect]
     Active Substance: GEMCITABINE
     Indication: CLEAR CELL RENAL CELL CARCINOMA
  34. CISPLATIN. [Suspect]
     Active Substance: CISPLATIN
     Indication: OVARIAN CANCER
  35. VINORELBINE BITARTRATE [Suspect]
     Active Substance: VINORELBINE TARTRATE
     Indication: URETERIC CANCER
  36. DACARBAZINE. [Suspect]
     Active Substance: DACARBAZINE
     Indication: OVARIAN CANCER
  37. DACARBAZINE. [Suspect]
     Active Substance: DACARBAZINE
     Indication: CLEAR CELL RENAL CELL CARCINOMA
  38. OXALIPLATIN. [Suspect]
     Active Substance: OXALIPLATIN
     Indication: COLORECTAL CANCER
  39. OXALIPLATIN. [Suspect]
     Active Substance: OXALIPLATIN
     Indication: CERVIX CARCINOMA
  40. OXALIPLATIN. [Suspect]
     Active Substance: OXALIPLATIN
     Indication: GASTRIC CANCER
  41. IRINOTECAN [Suspect]
     Active Substance: IRINOTECAN
     Indication: GLIOBLASTOMA
  42. 5-FLUOROURACIL [FLUOROURACIL] [Suspect]
     Active Substance: FLUOROURACIL
     Indication: COLORECTAL CANCER
  43. 5-FLUOROURACIL [FLUOROURACIL] [Suspect]
     Active Substance: FLUOROURACIL
     Indication: OVARIAN CANCER
  44. RALTITREXED [Suspect]
     Active Substance: RALTITREXED
     Indication: MALIGNANT MELANOMA
  45. PACLITAXEL. [Suspect]
     Active Substance: PACLITAXEL
     Indication: NON-SMALL CELL LUNG CANCER
     Route: 065
  46. CARBOPLATIN. [Suspect]
     Active Substance: CARBOPLATIN
     Indication: BREAST CANCER
  47. BEVACIZUMAB. [Suspect]
     Active Substance: BEVACIZUMAB
     Indication: OVARIAN CANCER
  48. IRINOTECAN [Suspect]
     Active Substance: IRINOTECAN
     Indication: NON-SMALL CELL LUNG CANCER
     Route: 065
  49. IRINOTECAN [Suspect]
     Active Substance: IRINOTECAN
     Indication: MALIGNANT MELANOMA
  50. IRINOTECAN [Suspect]
     Active Substance: IRINOTECAN
     Indication: CLEAR CELL RENAL CELL CARCINOMA
  51. 5-FLUOROURACIL [FLUOROURACIL] [Suspect]
     Active Substance: FLUOROURACIL
     Indication: GLIOBLASTOMA
  52. RALTITREXED [Suspect]
     Active Substance: RALTITREXED
     Indication: NON-SMALL CELL LUNG CANCER
     Route: 065
  53. PACLITAXEL. [Suspect]
     Active Substance: PACLITAXEL
     Indication: URETERIC CANCER
  54. CISPLATIN. [Suspect]
     Active Substance: CISPLATIN
     Indication: CERVIX CARCINOMA
  55. VINORELBINE BITARTRATE [Suspect]
     Active Substance: VINORELBINE TARTRATE
     Indication: OVARIAN CANCER
  56. VINORELBINE BITARTRATE [Suspect]
     Active Substance: VINORELBINE TARTRATE
     Indication: CLEAR CELL RENAL CELL CARCINOMA
  57. BEVACIZUMAB. [Suspect]
     Active Substance: BEVACIZUMAB
     Indication: NON-SMALL CELL LUNG CANCER
     Route: 065
  58. BEVACIZUMAB. [Suspect]
     Active Substance: BEVACIZUMAB
     Indication: MALIGNANT MELANOMA
  59. BEVACIZUMAB. [Suspect]
     Active Substance: BEVACIZUMAB
     Indication: CERVIX CARCINOMA
  60. CAPECITABINE. [Suspect]
     Active Substance: CAPECITABINE
     Indication: BREAST CANCER
  61. OXALIPLATIN. [Suspect]
     Active Substance: OXALIPLATIN
     Indication: GLIOBLASTOMA
  62. IRINOTECAN [Suspect]
     Active Substance: IRINOTECAN
     Indication: OVARIAN CANCER
  63. 5-FLUOROURACIL [FLUOROURACIL] [Suspect]
     Active Substance: FLUOROURACIL
     Indication: SOFT TISSUE SARCOMA
  64. RALTITREXED [Suspect]
     Active Substance: RALTITREXED
     Indication: COLORECTAL CANCER
  65. RALTITREXED [Suspect]
     Active Substance: RALTITREXED
     Indication: BREAST CANCER
  66. RALTITREXED [Suspect]
     Active Substance: RALTITREXED
     Indication: OVARIAN CANCER
  67. PACLITAXEL. [Suspect]
     Active Substance: PACLITAXEL
     Indication: COLORECTAL CANCER
  68. CARBOPLATIN. [Suspect]
     Active Substance: CARBOPLATIN
     Indication: COLORECTAL CANCER
  69. GEMCITABINE. [Suspect]
     Active Substance: GEMCITABINE
     Indication: SOFT TISSUE SARCOMA
  70. CISPLATIN. [Suspect]
     Active Substance: CISPLATIN
     Indication: BREAST CANCER
  71. VINORELBINE BITARTRATE [Suspect]
     Active Substance: VINORELBINE TARTRATE
     Indication: BREAST CANCER
  72. VINORELBINE BITARTRATE [Suspect]
     Active Substance: VINORELBINE TARTRATE
     Indication: SOFT TISSUE SARCOMA
  73. DACARBAZINE. [Suspect]
     Active Substance: DACARBAZINE
     Indication: NON-SMALL CELL LUNG CANCER
     Route: 065
  74. DACARBAZINE. [Suspect]
     Active Substance: DACARBAZINE
     Indication: CERVIX CARCINOMA
  75. BEVACIZUMAB. [Suspect]
     Active Substance: BEVACIZUMAB
     Indication: GLIOBLASTOMA
  76. BEVACIZUMAB. [Suspect]
     Active Substance: BEVACIZUMAB
     Indication: CLEAR CELL RENAL CELL CARCINOMA
  77. CAPECITABINE. [Suspect]
     Active Substance: CAPECITABINE
     Indication: NON-SMALL CELL LUNG CANCER
     Route: 048
  78. CAPECITABINE. [Suspect]
     Active Substance: CAPECITABINE
     Indication: GLIOBLASTOMA
  79. OXALIPLATIN. [Suspect]
     Active Substance: OXALIPLATIN
     Indication: URETERIC CANCER
  80. OXALIPLATIN. [Suspect]
     Active Substance: OXALIPLATIN
     Indication: OVARIAN CANCER
  81. OXALIPLATIN. [Suspect]
     Active Substance: OXALIPLATIN
     Indication: CLEAR CELL RENAL CELL CARCINOMA
  82. 5-FLUOROURACIL [FLUOROURACIL] [Suspect]
     Active Substance: FLUOROURACIL
     Indication: GASTRIC CANCER
  83. 5-FLUOROURACIL [FLUOROURACIL] [Suspect]
     Active Substance: FLUOROURACIL
     Indication: URETERIC CANCER
  84. PACLITAXEL. [Suspect]
     Active Substance: PACLITAXEL
     Indication: CLEAR CELL RENAL CELL CARCINOMA
  85. CARBOPLATIN. [Suspect]
     Active Substance: CARBOPLATIN
     Indication: NON-SMALL CELL LUNG CANCER
     Route: 065
  86. CARBOPLATIN. [Suspect]
     Active Substance: CARBOPLATIN
     Indication: GLIOBLASTOMA
  87. GEMCITABINE. [Suspect]
     Active Substance: GEMCITABINE
     Indication: URETERIC CANCER
  88. CISPLATIN. [Suspect]
     Active Substance: CISPLATIN
     Indication: NON-SMALL CELL LUNG CANCER
     Route: 065
  89. CISPLATIN. [Suspect]
     Active Substance: CISPLATIN
     Indication: GLIOBLASTOMA
  90. VINORELBINE BITARTRATE [Suspect]
     Active Substance: VINORELBINE TARTRATE
     Indication: GLIOBLASTOMA
  91. DACARBAZINE. [Suspect]
     Active Substance: DACARBAZINE
     Indication: COLORECTAL CANCER
  92. DACARBAZINE. [Suspect]
     Active Substance: DACARBAZINE
     Indication: GLIOBLASTOMA
  93. BEVACIZUMAB. [Suspect]
     Active Substance: BEVACIZUMAB
     Indication: COLORECTAL CANCER
  94. BEVACIZUMAB. [Suspect]
     Active Substance: BEVACIZUMAB
     Indication: URETERIC CANCER
  95. CAPECITABINE. [Suspect]
     Active Substance: CAPECITABINE
     Indication: OVARIAN CANCER
  96. IRINOTECAN [Suspect]
     Active Substance: IRINOTECAN
     Indication: COLORECTAL CANCER
  97. IRINOTECAN [Suspect]
     Active Substance: IRINOTECAN
     Indication: SOFT TISSUE SARCOMA
  98. IRINOTECAN [Suspect]
     Active Substance: IRINOTECAN
     Indication: URETERIC CANCER
  99. 5-FLUOROURACIL [FLUOROURACIL] [Suspect]
     Active Substance: FLUOROURACIL
     Indication: CERVIX CARCINOMA
  100. RALTITREXED [Suspect]
     Active Substance: RALTITREXED
     Indication: CLEAR CELL RENAL CELL CARCINOMA
  101. PACLITAXEL. [Suspect]
     Active Substance: PACLITAXEL
     Indication: SOFT TISSUE SARCOMA
  102. CARBOPLATIN. [Suspect]
     Active Substance: CARBOPLATIN
     Indication: CERVIX CARCINOMA
  103. CARBOPLATIN. [Suspect]
     Active Substance: CARBOPLATIN
     Indication: GASTRIC CANCER
  104. CARBOPLATIN. [Suspect]
     Active Substance: CARBOPLATIN
     Indication: URETERIC CANCER
  105. GEMCITABINE. [Suspect]
     Active Substance: GEMCITABINE
     Indication: COLORECTAL CANCER
  106. GEMCITABINE. [Suspect]
     Active Substance: GEMCITABINE
     Indication: BREAST CANCER
  107. GEMCITABINE. [Suspect]
     Active Substance: GEMCITABINE
     Indication: OVARIAN CANCER
  108. CISPLATIN. [Suspect]
     Active Substance: CISPLATIN
     Indication: COLORECTAL CANCER
  109. CISPLATIN. [Suspect]
     Active Substance: CISPLATIN
     Indication: SOFT TISSUE SARCOMA
  110. CISPLATIN. [Suspect]
     Active Substance: CISPLATIN
     Indication: URETERIC CANCER
  111. CISPLATIN. [Suspect]
     Active Substance: CISPLATIN
     Indication: CLEAR CELL RENAL CELL CARCINOMA
  112. VINORELBINE BITARTRATE [Suspect]
     Active Substance: VINORELBINE TARTRATE
     Indication: COLORECTAL CANCER
  113. BEVACIZUMAB. [Suspect]
     Active Substance: BEVACIZUMAB
     Indication: BREAST CANCER
  114. CAPECITABINE. [Suspect]
     Active Substance: CAPECITABINE
     Indication: SOFT TISSUE SARCOMA
  115. OXALIPLATIN. [Suspect]
     Active Substance: OXALIPLATIN
     Indication: NON-SMALL CELL LUNG CANCER
     Route: 065
  116. OXALIPLATIN. [Suspect]
     Active Substance: OXALIPLATIN
     Indication: MALIGNANT MELANOMA
  117. 5-FLUOROURACIL [FLUOROURACIL] [Suspect]
     Active Substance: FLUOROURACIL
     Indication: NON-SMALL CELL LUNG CANCER
     Route: 065
  118. 5-FLUOROURACIL [FLUOROURACIL] [Suspect]
     Active Substance: FLUOROURACIL
     Indication: MALIGNANT MELANOMA
  119. RALTITREXED [Suspect]
     Active Substance: RALTITREXED
     Indication: CERVIX CARCINOMA
  120. RALTITREXED [Suspect]
     Active Substance: RALTITREXED
     Indication: GLIOBLASTOMA
  121. PACLITAXEL. [Suspect]
     Active Substance: PACLITAXEL
     Indication: CERVIX CARCINOMA
  122. PACLITAXEL. [Suspect]
     Active Substance: PACLITAXEL
     Indication: GASTRIC CANCER
  123. PACLITAXEL. [Suspect]
     Active Substance: PACLITAXEL
     Indication: OVARIAN CANCER
  124. CARBOPLATIN. [Suspect]
     Active Substance: CARBOPLATIN
     Indication: MALIGNANT MELANOMA
  125. CARBOPLATIN. [Suspect]
     Active Substance: CARBOPLATIN
     Indication: OVARIAN CANCER
  126. CARBOPLATIN. [Suspect]
     Active Substance: CARBOPLATIN
     Indication: CLEAR CELL RENAL CELL CARCINOMA
  127. GEMCITABINE. [Suspect]
     Active Substance: GEMCITABINE
     Indication: GASTRIC CANCER
  128. CISPLATIN. [Suspect]
     Active Substance: CISPLATIN
     Indication: MALIGNANT MELANOMA
  129. VINORELBINE BITARTRATE [Suspect]
     Active Substance: VINORELBINE TARTRATE
     Indication: NON-SMALL CELL LUNG CANCER
     Route: 065
  130. VINORELBINE BITARTRATE [Suspect]
     Active Substance: VINORELBINE TARTRATE
     Indication: CERVIX CARCINOMA
  131. DACARBAZINE. [Suspect]
     Active Substance: DACARBAZINE
     Indication: BREAST CANCER
  132. DACARBAZINE. [Suspect]
     Active Substance: DACARBAZINE
     Indication: GASTRIC CANCER

REACTIONS (17)
  - Neutrophil count decreased [Unknown]
  - Supraventricular tachycardia [Unknown]
  - Proteinuria [Unknown]
  - Diarrhoea [Unknown]
  - Pneumonitis [Unknown]
  - Asthenia [Unknown]
  - Intentional product use issue [Unknown]
  - Fatigue [Unknown]
  - Arrhythmia [Unknown]
  - Off label use [Unknown]
  - Hypertension [Unknown]
  - Sepsis [Unknown]
  - Bone marrow failure [Unknown]
  - Myocardial ischaemia [Unknown]
  - Abdominal pain [Unknown]
  - Febrile neutropenia [Unknown]
  - Dehydration [Unknown]
